APPROVED DRUG PRODUCT: DYANAVEL XR
Active Ingredient: AMPHETAMINE; AMPHETAMINE ASPARTATE/DEXTROAMPHETAMINE SULFATE
Strength: 2MG/ML;EQ 0.5MG BASE/ML
Dosage Form/Route: SUSPENSION, EXTENDED RELEASE;ORAL
Application: N208147 | Product #001
Applicant: TRIS PHARMA INC
Approved: Oct 19, 2015 | RLD: Yes | RS: Yes | Type: RX

PATENTS:
Patent 11590228 | Expires: Sep 7, 2036
Patent 8062667 | Expires: Mar 29, 2029
Patent 8597684 | Expires: Mar 15, 2027
Patent 10086087 | Expires: Mar 15, 2027
Patent 8747902 | Expires: Mar 15, 2027
Patent 8883217 | Expires: Mar 15, 2027
Patent 9675703 | Expires: Mar 15, 2027